FAERS Safety Report 16447000 (Version 1)
Quarter: 2019Q2

REPORT INFORMATION
  Report Type: Spontaneous
  Country: US (occurrence: US)
  Receive Date: 20190618
  Receipt Date: 20190618
  Transmission Date: 20190711
  Serious: No
  Sender: FDA-Public Use
  Company Number: PHEH2019US025262

PATIENT
  Age: 50 Year
  Sex: Female

DRUGS (1)
  1. GLATOPA [Suspect]
     Active Substance: GLATIRAMER ACETATE
     Indication: PRODUCT USED FOR UNKNOWN INDICATION
     Dosage: UNK, TID
     Route: 065
     Dates: start: 20190613

REACTIONS (3)
  - Dyspnoea [Unknown]
  - Anxiety [Unknown]
  - Chest pain [Unknown]

NARRATIVE: CASE EVENT DATE: 20190613
